FAERS Safety Report 4661879-1 (Version None)
Quarter: 2005Q2

REPORT INFORMATION
  Report Type: 
  Country: None (occurrence: None)
  Receive Date: 20050513
  Receipt Date: 20050510
  Transmission Date: 20051028
  Serious: Yes (Life-Threatening)
  Sender: FDA-Public Use
  Company Number: AU-MERCK-0505AUS00082

PATIENT
  Age: 42 Year
  Sex: Female
  Weight: 53 kg

DRUGS (6)
  1. CISPLATIN [Suspect]
     Indication: CERVIX CARCINOMA
     Route: 051
     Dates: start: 20050218, end: 20050304
  2. EMEND [Suspect]
     Indication: POST PROCEDURAL NAUSEA
     Route: 048
     Dates: start: 20050304
  3. EMEND [Suspect]
     Indication: POST PROCEDURAL VOMITING
     Route: 048
     Dates: start: 20050304
  4. ONDANSETRON [Suspect]
     Indication: POST PROCEDURAL NAUSEA
     Route: 065
     Dates: start: 20050218, end: 20050304
  5. ONDANSETRON [Suspect]
     Indication: POST PROCEDURAL VOMITING
     Route: 065
     Dates: start: 20050218, end: 20050304
  6. DEXAMETHASONE [Suspect]
     Route: 065

REACTIONS (4)
  - ANXIETY [None]
  - HYPOTENSION [None]
  - PYREXIA [None]
  - RASH [None]
